FAERS Safety Report 10402985 (Version 8)
Quarter: 2015Q2

REPORT INFORMATION
  Report Type: Spontaneous
  Country: US (occurrence: US)
  Receive Date: 20140822
  Receipt Date: 20150619
  Transmission Date: 20150821
  Serious: Yes (Hospitalization, Other)
  Sender: FDA-Public Use
  Company Number: US-GLAXOSMITHKLINE-A1084971A

PATIENT
  Age: 52 Year
  Sex: Female

DRUGS (27)
  1. BACTRIM DS [Concomitant]
     Active Substance: SULFAMETHOXAZOLE\TRIMETHOPRIM
  2. CITALOPRAM [Concomitant]
     Active Substance: CITALOPRAM HYDROBROMIDE
  3. EVOXAC [Concomitant]
     Active Substance: CEVIMELINE HYDROCHLORIDE
  4. VICODIN [Concomitant]
     Active Substance: ACETAMINOPHEN\HYDROCODONE BITARTRATE
  5. ADVAIR HFA [Concomitant]
     Active Substance: FLUTICASONE PROPIONATE\SALMETEROL XINAFOATE
  6. WELLBUTRIN [Concomitant]
     Active Substance: BUPROPION HYDROCHLORIDE
  7. PHENERGAN [Concomitant]
     Active Substance: PROMETHAZINE HYDROCHLORIDE
  8. VITAMIN C [Concomitant]
     Active Substance: ASCORBIC ACID
  9. BENLYSTA [Suspect]
     Active Substance: BELIMUMAB
     Indication: SYSTEMIC LUPUS ERYTHEMATOSUS
     Dosage: 1000MG MONTHLY
     Route: 042
     Dates: start: 201204
  10. PREDNISONE. [Concomitant]
     Active Substance: PREDNISONE
  11. LYRICA [Concomitant]
     Active Substance: PREGABALIN
  12. ESTRATEST HS [Concomitant]
     Active Substance: ESTROGENS, ESTERIFIED\METHYLTESTOSTERONE
  13. VITAMIN D [Concomitant]
     Active Substance: CHOLECALCIFEROL
  14. MAGNESIUM [Concomitant]
     Active Substance: MAGNESIUM
  15. BENADRYL [Concomitant]
     Active Substance: DIPHENHYDRAMINE HYDROCHLORIDE
  16. MIRALAX [Concomitant]
     Active Substance: POLYETHYLENE GLYCOL 3350
  17. XANAX [Concomitant]
     Active Substance: ALPRAZOLAM
  18. CALCIUM [Concomitant]
     Active Substance: CALCIUM
  19. CELLCEPT [Concomitant]
     Active Substance: MYCOPHENOLATE MOFETIL\MYCOPHENOLATE MOFETIL HYDROCHLORIDE
  20. KRILL OIL [Concomitant]
     Active Substance: DIETARY SUPPLEMENT
  21. VITAMIN B COMPLEX [Concomitant]
     Active Substance: CYANOCOBALAMIN\DEXPANTHENOL\NIACINAMIDE\PYRIDOXINE HYDROCHLORIDE\RIBOFLAVIN 5^-PHOSPHATE SODIUM\THIAMINE HYDROCHLORIDE\VITAMIN B COMPLEX
  22. NUCYNTA [Concomitant]
     Active Substance: TAPENTADOL HYDROCHLORIDE
  23. AMBIEN CR [Concomitant]
     Active Substance: ZOLPIDEM TARTRATE
  24. PROTONIX [Concomitant]
     Active Substance: PANTOPRAZOLE SODIUM
  25. SINEMET CR [Concomitant]
     Active Substance: CARBIDOPA\LEVODOPA
  26. DEXAMETHASONE. [Concomitant]
     Active Substance: DEXAMETHASONE
  27. KLONOPIN [Concomitant]
     Active Substance: CLONAZEPAM

REACTIONS (17)
  - Joint arthroplasty [Unknown]
  - Sjogren^s syndrome [Recovering/Resolving]
  - Oxygen saturation decreased [Recovering/Resolving]
  - Cartilage atrophy [Unknown]
  - Bladder catheterisation [Not Recovered/Not Resolved]
  - Medical device removal [Unknown]
  - Knee arthroplasty [Recovering/Resolving]
  - Surgery [Unknown]
  - Dysphonia [Recovering/Resolving]
  - Lung disorder [Unknown]
  - Cystitis [Unknown]
  - Urinary tract infection [Unknown]
  - Discomfort [Unknown]
  - Asthma [Unknown]
  - Muscle spasms [Not Recovered/Not Resolved]
  - Arthralgia [Unknown]
  - Urinary retention [Recovered/Resolved]

NARRATIVE: CASE EVENT DATE: 2013
